FAERS Safety Report 17347731 (Version 1)
Quarter: 2020Q1

REPORT INFORMATION
  Report Type: Spontaneous
  Country: US (occurrence: US)
  Receive Date: 20200129
  Receipt Date: 20200129
  Transmission Date: 20200409
  Serious: Yes (Hospitalization)
  Sender: FDA-Public Use
  Company Number: None

PATIENT
  Age: 38 Year
  Sex: Female
  Weight: 99.45 kg

DRUGS (1)
  1. OZEMPIC [Suspect]
     Active Substance: SEMAGLUTIDE
     Indication: WEIGHT DECREASED
     Route: 058
     Dates: start: 20200124, end: 20200124

REACTIONS (7)
  - Hyperhidrosis [None]
  - Diarrhoea [None]
  - Vomiting [None]
  - Abdominal pain upper [None]
  - Vision blurred [None]
  - Dyspepsia [None]
  - Pruritus [None]

NARRATIVE: CASE EVENT DATE: 20200124
